FAERS Safety Report 8767410 (Version 1)
Quarter: 2012Q4

REPORT INFORMATION
  Report Type: 
  Country: SE (occurrence: SE)
  Receive Date: 20120904
  Receipt Date: 20120904
  Transmission Date: 20130627
  Serious: Yes (Hospitalization)
  Sender: FDA-Public Use
  Company Number: SE-B.I. PHARMACEUTICALS,INC./RIDGEFIELD-2012-SW-00654SW

PATIENT
  Age: 88 None
  Sex: Female

DRUGS (5)
  1. SIFROL TAB [Suspect]
     Indication: PARKINSON^S DISEASE
     Dosage: 2+2+1 tabl daily as of MAY2011, 1 tabl 3 times daily as of JUL2011
     Dates: start: 2002
  2. MADOPARK [Concomitant]
     Indication: PARKINSON^S DISEASE
  3. ATACAND [Concomitant]
     Indication: HYPERTENSION
  4. FURIX [Concomitant]
     Indication: HYPERTENSION
  5. TROMBYL [Concomitant]

REACTIONS (8)
  - Fall [Recovered/Resolved]
  - Fall [Not Recovered/Not Resolved]
  - Coarctation of the aorta [Unknown]
  - Dizziness [Unknown]
  - Hallucination [Unknown]
  - Anxiety [Unknown]
  - Eczema [Unknown]
  - Cystitis [Unknown]
